FAERS Safety Report 16160152 (Version 2)
Quarter: 2019Q2

REPORT INFORMATION
  Report Type: Spontaneous
  Country: US (occurrence: US)
  Receive Date: 20190404
  Receipt Date: 20190415
  Transmission Date: 20190711
  Serious: Yes (Other)
  Sender: FDA-Public Use
  Company Number: US-TEVA-2019-US-1035619

PATIENT
  Sex: Female

DRUGS (2)
  1. PROGESTERONE. [Suspect]
     Active Substance: PROGESTERONE
     Indication: CERVICAL INCOMPETENCE
     Dosage: DAILY
     Route: 064
  2. BETAMETHASONE. [Suspect]
     Active Substance: BETAMETHASONE
     Route: 064

REACTIONS (5)
  - Premature baby [Unknown]
  - Foetal exposure during pregnancy [Unknown]
  - Retinopathy [Unknown]
  - Enlarged clitoris [Unknown]
  - Cerebral haemorrhage [Unknown]
